FAERS Safety Report 25019683 (Version 3)
Quarter: 2025Q2

REPORT INFORMATION
  Report Type: Report from Study
  Country: US (occurrence: US)
  Receive Date: 20250227
  Receipt Date: 20250610
  Transmission Date: 20250717
  Serious: Yes (Other)
  Sender: ALNYLAM PHARMACEUTICALS
  Company Number: US-ALNYLAM PHARMACEUTICALS, INC.-ALN-2025-001228

PATIENT

DRUGS (2)
  1. AMVUTTRA [Suspect]
     Active Substance: VUTRISIRAN
     Indication: Hereditary neuropathic amyloidosis
     Route: 065
     Dates: start: 20240516, end: 20240516
  2. ELIQUIS [Concomitant]
     Active Substance: APIXABAN
     Indication: Product used for unknown indication
     Route: 065

REACTIONS (13)
  - Atrial fibrillation [Unknown]
  - Pericardial effusion [Unknown]
  - Vitreous floaters [Unknown]
  - Vision blurred [Unknown]
  - Onychoclasis [Unknown]
  - Hypoaesthesia [Unknown]
  - Peripheral swelling [Unknown]
  - Balance disorder [Unknown]
  - Arthritis [Unknown]
  - Intentional dose omission [Unknown]
  - Vitamin A decreased [Unknown]
  - Adverse event [Unknown]
  - General physical health deterioration [Unknown]
